FAERS Safety Report 24107860 (Version 1)
Quarter: 2024Q3

REPORT INFORMATION
  Report Type: Report from Study
  Country: US (occurrence: None)
  Receive Date: 20240718
  Receipt Date: 20240718
  Transmission Date: 20241017
  Serious: Yes (Other)
  Sender: ASTRAZENECA
  Company Number: 2020SF01040

PATIENT
  Age: 23305 Day
  Sex: Female

DRUGS (4)
  1. LYNPARZA [Suspect]
     Active Substance: OLAPARIB
     Indication: Ovarian cancer
     Route: 048
     Dates: start: 20200720, end: 20200803
  2. LYNPARZA [Suspect]
     Active Substance: OLAPARIB
     Indication: Ovarian cancer
     Route: 048
     Dates: start: 20200810
  3. LYNPARZA [Suspect]
     Active Substance: OLAPARIB
     Indication: Ovarian cancer
     Route: 048
  4. AVASTIN [Concomitant]
     Active Substance: BEVACIZUMAB

REACTIONS (12)
  - Glomerular filtration rate decreased [Recovering/Resolving]
  - Blood creatinine increased [Recovering/Resolving]
  - Haemoglobin decreased [Unknown]
  - Diarrhoea [Recovering/Resolving]
  - Headache [Recovering/Resolving]
  - Fatigue [Not Recovered/Not Resolved]
  - Renal pain [Unknown]
  - Insomnia [Recovering/Resolving]
  - Oral pain [Unknown]
  - Oral disorder [Unknown]
  - Product use issue [Unknown]
  - Intentional product misuse [Unknown]

NARRATIVE: CASE EVENT DATE: 20200803
